FAERS Safety Report 10135910 (Version 2)
Quarter: 2014Q2

REPORT INFORMATION
  Report Type: Spontaneous
  Country: US (occurrence: US)
  Receive Date: 20140428
  Receipt Date: 20140513
  Transmission Date: 20141212
  Serious: Yes (Hospitalization, Other)
  Sender: FDA-Public Use
  Company Number: PHHY2014US049565

PATIENT
  Age: 92 Year
  Sex: Female

DRUGS (18)
  1. BACLOFEN INTRATHECAL [Suspect]
     Indication: PAIN
     Dosage: 35.01 UG/DAY
     Route: 037
  2. AMITRIPTYLINE HCL TABLETS USP [Suspect]
     Dosage: 1 DF, QHS (1 TABLET OF 50 MG, AT BEDTIME)
  3. LISINOPRIL TABLETS [Suspect]
     Dosage: 1 DF/DAILY (1 TABLET OF 20 MG DAILY)
  4. SIMVASTATIN [Suspect]
     Dosage: 1 DF, DAILY (1 TABLET OF 40 MG, DAILY)
  5. CLONIDINE [Suspect]
     Dosage: 70.02 UG/DAY
     Route: 037
  6. BUPIVACAINE [Suspect]
     Dosage: 2.626 MG/DAY
     Route: 037
  7. ASPERCREAM [Suspect]
     Dosage: UNK UKN, PRN (AS DIRECTED ON TUBE AS NEEDED)
  8. CLOBETASOL [Suspect]
     Dosage: UNK UKN, UNK
  9. IMITREX [Suspect]
     Dosage: UNK UKN, PRN (6 MG/0.5 INJECTION AS NEEDED)
     Route: 058
  10. LEXAPRO [Suspect]
     Dosage: 1 DF, DAILY (1 TABLET DAILY)
  11. LIDODERM [Suspect]
     Dosage: UNK UKN, UNK (APP AA DAILY)
  12. TOPROL XL [Suspect]
     Dosage: 1 DF, DAILY (1 TABLET OF 50 MG, DAILY)
  13. TYLENOL [Suspect]
     Dosage: UNK UKN, PRN (WHEN NECESSARY)
  14. VALIUM [Suspect]
     Indication: ANXIETY
     Dosage: UNK UKN, PRN (WHEN NECESSARY)
  15. ZANTAC [Suspect]
     Dosage: 1 DF, QHS (ONE DF OF 150 MG AT BEDTIME)
  16. DIURETICS [Suspect]
     Dosage: UNK UKN, UNK
  17. SUFENTANIL [Suspect]
     Indication: PAIN
     Dosage: 35.01 UG, DAILY
     Route: 037
  18. CYMBALTA [Suspect]
     Dosage: 1 DF, DAILY
     Dates: start: 20121220

REACTIONS (55)
  - Cerebrovascular accident [Unknown]
  - Crepitations [Recovered/Resolved]
  - Catatonia [Unknown]
  - Hearing impaired [Unknown]
  - Oxygen saturation decreased [Unknown]
  - Rotator cuff syndrome [Unknown]
  - Conversion disorder [Unknown]
  - Sciatica [Unknown]
  - Contusion [Unknown]
  - Joint swelling [Unknown]
  - Hypoaesthesia [Unknown]
  - Osteoarthritis [Unknown]
  - Compression fracture [Recovered/Resolved]
  - Hypopnoea [Unknown]
  - Bursitis [Unknown]
  - Fractured sacrum [Recovered/Resolved]
  - Local swelling [Unknown]
  - Fluid retention [Unknown]
  - Fall [Unknown]
  - Adhesion [Unknown]
  - Discomfort [Unknown]
  - Tenderness [Unknown]
  - Gait disturbance [Unknown]
  - Mobility decreased [Unknown]
  - Performance status decreased [Unknown]
  - Sleep disorder [Unknown]
  - Oedema [Unknown]
  - Rash [Unknown]
  - Wound [Unknown]
  - Gastrointestinal sounds abnormal [Unknown]
  - Hypotension [Unknown]
  - Depression [Unknown]
  - Mental status changes [Unknown]
  - Confusional state [Unknown]
  - Oedema peripheral [Unknown]
  - Condition aggravated [Unknown]
  - Injection site pain [Unknown]
  - Lethargy [Unknown]
  - Pallor [Unknown]
  - Headache [Unknown]
  - Sedation [Unknown]
  - Respiratory depression [Unknown]
  - Asthenia [Unknown]
  - Muscle rigidity [Unknown]
  - Anxiety [Unknown]
  - Musculoskeletal pain [Recovered/Resolved]
  - Arthralgia [Recovered/Resolved]
  - Neuralgia [Unknown]
  - Pain in extremity [Unknown]
  - Pain [Recovered/Resolved]
  - Back pain [Recovered/Resolved]
  - Radicular pain [Unknown]
  - Overdose [Unknown]
  - No therapeutic response [Unknown]
  - Drug withdrawal syndrome [Unknown]
